FAERS Safety Report 16985231 (Version 1)
Quarter: 2019Q4

REPORT INFORMATION
  Report Type: Report from Study
  Country: MX (occurrence: MX)
  Receive Date: 20191101
  Receipt Date: 20191101
  Transmission Date: 20200122
  Serious: Yes (Hospitalization)
  Sender: FDA-Public Use
  Company Number: NVSC2019MX021962

PATIENT
  Age: 46 Year
  Sex: Female
  Weight: 54 kg

DRUGS (1)
  1. ENTRESTO [Suspect]
     Active Substance: SACUBITRIL\VALSARTAN
     Indication: CARDIAC DISORDER
     Dosage: 50 MG (SACUBITRIL 24MG AND VALSARTAN 26MG), Q12H
     Route: 048
     Dates: start: 201808

REACTIONS (7)
  - Fall [Recovering/Resolving]
  - Skin fissures [Recovering/Resolving]
  - Scratch [Recovering/Resolving]
  - Road traffic accident [Recovering/Resolving]
  - Product use in unapproved indication [Unknown]
  - Contusion [Recovering/Resolving]
  - Facial bones fracture [Recovering/Resolving]

NARRATIVE: CASE EVENT DATE: 20191024
